FAERS Safety Report 24282757 (Version 1)
Quarter: 2024Q3

REPORT INFORMATION
  Report Type: Spontaneous
  Country: US (occurrence: US)
  Receive Date: 20240904
  Receipt Date: 20240904
  Transmission Date: 20241017
  Serious: No
  Sender: PFIZER
  Company Number: US-PFIZER INC-202400247492

PATIENT
  Sex: Female

DRUGS (1)
  1. IBRANCE [Interacting]
     Active Substance: PALBOCICLIB
     Dosage: UNK

REACTIONS (1)
  - Food interaction [Unknown]
